FAERS Safety Report 6616972-0 (Version None)
Quarter: 2010Q1

REPORT INFORMATION
  Report Type: 
  Country: None (occurrence: None)
  Receive Date: 20100302
  Receipt Date: 20100218
  Transmission Date: 20100710
  Serious: Yes (Death)
  Sender: FDA-Public Use
  Company Number: 2010-0587

PATIENT
  Sex: Female

DRUGS (1)
  1. APO-GO AMPOULES (APO-GO) APOMORHINE HYDROCHLORIDE) (APOMORPHINE HYDROC [Suspect]
     Indication: DRUG USE FOR UNKNOWN INDICATION
     Dosage: SUBCUTANEOUS
     Route: 058

REACTIONS (1)
  - DEATH [None]
